FAERS Safety Report 5761361-4 (Version None)
Quarter: 2008Q2

REPORT INFORMATION
  Report Type: 
  Country: None (occurrence: None)
  Receive Date: 20080606
  Receipt Date: 20080522
  Transmission Date: 20081010
  Serious: Yes (Hospitalization)
  Sender: FDA-Public Use
  Company Number: JP-GENENTECH-262022

PATIENT
  Sex: Female

DRUGS (3)
  1. BEVACIZUMAB [Suspect]
     Indication: RECTAL CANCER
     Dosage: 227.5 MG, Q2W
     Route: 042
     Dates: start: 20080512, end: 20080521
  2. TS-1 [Suspect]
     Indication: RECTAL CANCER
     Dosage: 50 MG, BID
     Route: 048
     Dates: start: 20080512, end: 20080521
  3. IRINOTECAN HCL [Suspect]
     Indication: RECTAL CANCER
     Dosage: 139 MG, Q2W
     Route: 042
     Dates: start: 20080512, end: 20080521

REACTIONS (1)
  - ENTEROCOLITIS [None]
